FAERS Safety Report 23534424 (Version 4)
Quarter: 2025Q3

REPORT INFORMATION
  Report Type: Report from Study
  Country: US (occurrence: US)
  Receive Date: 20240217
  Receipt Date: 20250708
  Transmission Date: 20251021
  Serious: Yes (Hospitalization, Other)
  Sender: ROCHE
  Company Number: US-ROCHE-3509674

PATIENT
  Age: 40 Year
  Sex: Male
  Weight: 92.99 kg

DRUGS (7)
  1. EVRYSDI [Suspect]
     Active Substance: RISDIPLAM
     Indication: Spinal muscular atrophy
     Route: 048
     Dates: start: 2021, end: 202312
  2. EVRYSDI [Suspect]
     Active Substance: RISDIPLAM
     Route: 048
  3. LISINOPRIL [Concomitant]
     Active Substance: LISINOPRIL
  4. CIPROFLOXACIN [Concomitant]
     Active Substance: CIPROFLOXACIN
  5. ROBAXIN [Concomitant]
     Active Substance: METHOCARBAMOL
  6. MINOCYCLINE [Concomitant]
     Active Substance: MINOCYCLINE HYDROCHLORIDE
  7. SACCHAROMYCES CEREVISIAE [Concomitant]
     Active Substance: SACCHAROMYCES CEREVISIAE

REACTIONS (13)
  - Upper limb fracture [Unknown]
  - Tibia fracture [Recovered/Resolved]
  - Localised infection [Unknown]
  - Product dose omission issue [Unknown]
  - Fall [Unknown]
  - Hypertension [Unknown]
  - Thrombocytosis [Unknown]
  - Constipation [Unknown]
  - Granulocyte count increased [Unknown]
  - Aspartate aminotransferase increased [Unknown]
  - Alanine aminotransferase increased [Unknown]
  - Blood creatinine decreased [Unknown]
  - Blood urea nitrogen/creatinine ratio increased [Unknown]

NARRATIVE: CASE EVENT DATE: 20230501
